FAERS Safety Report 15548609 (Version 3)
Quarter: 2019Q3

REPORT INFORMATION
  Report Type: Report from Study
  Country: CA (occurrence: CA)
  Receive Date: 20181025
  Receipt Date: 20190810
  Transmission Date: 20191004
  Serious: Yes (Other)
  Sender: FDA-Public Use
  Company Number: CA-BRISTOL-MYERS SQUIBB COMPANY-BMS-2018-030957

PATIENT
  Age: 80 Year
  Sex: Female

DRUGS (1)
  1. ABATACEPT [Suspect]
     Active Substance: ABATACEPT
     Indication: RHEUMATOID ARTHRITIS
     Dosage: 500 MILLIGRAM, Q4WK
     Route: 042
     Dates: start: 20120725

REACTIONS (8)
  - Cardiac disorder [Unknown]
  - Oedema peripheral [Unknown]
  - Mobility decreased [Unknown]
  - Pain in extremity [Recovered/Resolved]
  - Arthralgia [Recovering/Resolving]
  - Contusion [Unknown]
  - Movement disorder [Unknown]
  - Limb injury [Unknown]

NARRATIVE: CASE EVENT DATE: 20180403
